FAERS Safety Report 6120280-4 (Version None)
Quarter: 2009Q1

REPORT INFORMATION
  Report Type: 
  Country: None (occurrence: None)
  Receive Date: 20090312
  Receipt Date: 20090225
  Transmission Date: 20090719
  Serious: Yes (Hospitalization, Other)
  Sender: FDA-Public Use
  Company Number: 2009S1003445

PATIENT
  Age: 93 Year
  Sex: Female

DRUGS (9)
  1. DICLOFENAC (DICLOFENAC) (50 MG) [Suspect]
     Indication: BONE PAIN
     Dosage: 50 MG;TWICE A DAY; ORAL
     Route: 048
     Dates: start: 20080501, end: 20080911
  2. CLOPIDOGREL [Suspect]
     Indication: MYOCARDIAL INFARCTION
     Dosage: 75 MG; DAILY; ORAL
     Route: 048
     Dates: start: 20050901
  3. AMLODIPINE [Concomitant]
  4. LANTUS [Concomitant]
  5. PANTOZOL [Concomitant]
  6. PARACETAMOL [Concomitant]
  7. SIMVASTATIN [Concomitant]
  8. TILIDINE [Concomitant]
  9. ISCOVER [Concomitant]

REACTIONS (2)
  - DRUG INTERACTION [None]
  - GASTROINTESTINAL ULCER HAEMORRHAGE [None]
